FAERS Safety Report 23530148 (Version 1)
Quarter: 2024Q1

REPORT INFORMATION
  Report Type: Spontaneous
  Country: US (occurrence: US)
  Receive Date: 20240216
  Receipt Date: 20240216
  Transmission Date: 20240410
  Serious: No
  Sender: FDA-Public Use
  Company Number: US-862174955-ML2024-00828

PATIENT

DRUGS (2)
  1. TRAVOPROST [Suspect]
     Active Substance: TRAVOPROST
     Indication: Product used for unknown indication
     Route: 047
  2. BLINK [Concomitant]
     Indication: Dry eye
     Route: 047

REACTIONS (4)
  - Dry eye [Unknown]
  - Vision blurred [Unknown]
  - Incorrect dose administered [Unknown]
  - Product container issue [Unknown]
